FAERS Safety Report 6506210-1 (Version None)
Quarter: 2009Q4

REPORT INFORMATION
  Report Type: 
  Country: None (occurrence: None)
  Receive Date: 20091218
  Receipt Date: 20091203
  Transmission Date: 20100525
  Serious: Yes (Hospitalization, Other)
  Sender: FDA-Public Use
  Company Number: PHHY2009AU53642

PATIENT
  Sex: Male

DRUGS (2)
  1. FAMVIR [Suspect]
     Indication: GENITAL HERPES
     Route: 048
  2. VALTREX [Concomitant]

REACTIONS (4)
  - DRUG INEFFECTIVE [None]
  - EMPHYSEMA [None]
  - LOWER RESPIRATORY TRACT INFECTION [None]
  - PNEUMONIA [None]
